FAERS Safety Report 4597261-5 (Version None)
Quarter: 2005Q1

REPORT INFORMATION
  Report Type: 
  Country: None (occurrence: None)
  Receive Date: 20050303
  Receipt Date: 20040816
  Transmission Date: 20050727
  Serious: Yes (Other)
  Sender: FDA-Public Use
  Company Number: PHBS2004BR10975

PATIENT
  Age: 65 Year
  Sex: Male
  Weight: 68 kg

DRUGS (6)
  1. CODATEN [Suspect]
     Indication: ARTHRALGIA
     Dosage: 1 TABLET TID
     Route: 048
     Dates: start: 20040804, end: 20040809
  2. DULCOLAX [Concomitant]
     Indication: LAXATIVE SUPPORTIVE CARE
     Dosage: 1 DF, TID
     Route: 048
  3. HIGROTON [Concomitant]
     Indication: DIURETIC THERAPY
     Dosage: 25 MG, QD
     Route: 048
  4. ASPIRINA [Concomitant]
     Dosage: UNK, UNK
     Route: 048
  5. GLUCOFORMIN [Concomitant]
     Indication: DIABETES MELLITUS
     Dosage: UNK, UNK
     Route: 048
  6. GLIBENCLAMIDE [Concomitant]
     Dosage: 5 MG, QD
     Route: 048

REACTIONS (13)
  - AMNESIA [None]
  - CONSTIPATION [None]
  - COORDINATION ABNORMAL [None]
  - DIZZINESS [None]
  - FLATULENCE [None]
  - HYPERTENSION [None]
  - INTESTINAL OBSTRUCTION [None]
  - IRRITABILITY [None]
  - ISCHAEMIA [None]
  - NAUSEA [None]
  - SPEECH DISORDER [None]
  - VISION BLURRED [None]
  - VISUAL ACUITY REDUCED [None]
